FAERS Safety Report 15661421 (Version 1)
Quarter: 2018Q4

REPORT INFORMATION
  Report Type: Report from Study
  Country: US (occurrence: US)
  Receive Date: 20181127
  Receipt Date: 20181127
  Transmission Date: 20190205
  Serious: Yes (Hospitalization)
  Sender: FDA-Public Use
  Company Number: US-EXELIXIS-XL18418017155

PATIENT
  Age: 60 Year
  Sex: Male

DRUGS (2)
  1. XL184 [Suspect]
     Active Substance: CABOZANTINIB
     Indication: PANCREATIC CARCINOMA
     Dosage: 40 MG, QD
     Route: 048
     Dates: start: 20181011, end: 20181108
  2. ERLOTINIB [Suspect]
     Active Substance: ERLOTINIB
     Indication: PANCREATIC CARCINOMA
     Dosage: 100 MG, QD
     Route: 048
     Dates: start: 20181011, end: 20181108

REACTIONS (1)
  - Pneumonia [Unknown]

NARRATIVE: CASE EVENT DATE: 20181118
